FAERS Safety Report 10238237 (Version 2)
Quarter: 2014Q2

REPORT INFORMATION
  Report Type: Report from Study
  Country: DE (occurrence: DE)
  Receive Date: 20140616
  Receipt Date: 20140616
  Transmission Date: 20141212
  Serious: Yes (Death, Other)
  Sender: FDA-Public Use
  Company Number: DE-ROCHE-1399770

PATIENT
  Age: 57 Year
  Sex: Male

DRUGS (5)
  1. BEVACIZUMAB [Suspect]
     Indication: NON-SMALL CELL LUNG CANCER
     Route: 065
     Dates: start: 20131009, end: 20140109
  2. BEVACIZUMAB [Suspect]
     Route: 065
     Dates: start: 20140123
  3. CISPLATIN [Suspect]
     Indication: NON-SMALL CELL LUNG CANCER
     Route: 065
     Dates: start: 20131009, end: 20140109
  4. PACLITAXEL [Suspect]
     Indication: NON-SMALL CELL LUNG CANCER
     Route: 065
     Dates: start: 20131009, end: 20140109
  5. METAMIZOL [Concomitant]
     Indication: PAIN
     Dosage: AS REQUIRED
     Route: 065

REACTIONS (4)
  - Cardiac failure [Fatal]
  - Pneumonia [Not Recovered/Not Resolved]
  - Venous thrombosis [Unknown]
  - Fungal infection [Unknown]
